FAERS Safety Report 12620250 (Version 2)
Quarter: 2016Q4

REPORT INFORMATION
  Report Type: Spontaneous
  Country: US (occurrence: US)
  Receive Date: 20160803
  Receipt Date: 20161103
  Transmission Date: 20170207
  Serious: No
  Sender: FDA-Public Use
  Company Number: US-OTSUKA-2016_017139

PATIENT
  Age: 33 Year
  Sex: Female
  Weight: 90.7 kg

DRUGS (1)
  1. ONZETRA [Suspect]
     Active Substance: SUMATRIPTAN SUCCINATE
     Indication: MIGRAINE
     Dosage: UNK
     Route: 065

REACTIONS (7)
  - Nasal discomfort [Unknown]
  - Pain [Unknown]
  - Hypertension [Unknown]
  - Tremor [Unknown]
  - Skin burning sensation [Unknown]
  - Neck pain [Unknown]
  - Tachycardia [Unknown]

NARRATIVE: CASE EVENT DATE: 20160711
